FAERS Safety Report 4876367-7 (Version None)
Quarter: 2006Q1

REPORT INFORMATION
  Report Type: 
  Country: None (occurrence: None)
  Receive Date: 20060110
  Receipt Date: 20051124
  Transmission Date: 20060701
  Serious: Yes (Other)
  Sender: FDA-Public Use
  Company Number: PHBS2005JP17401

PATIENT
  Sex: Female

DRUGS (2)
  1. TOFRANIL [Suspect]
     Indication: PANIC DISORDER
     Dosage: 40 MG/DAY
     Route: 048
  2. DEPAS [Suspect]
     Dosage: 3 MG/DAY
     Route: 048

REACTIONS (4)
  - CAESAREAN SECTION [None]
  - DRUG EXPOSURE DURING PREGNANCY [None]
  - PREMATURE RUPTURE OF MEMBRANES [None]
  - THREATENED LABOUR [None]
